FAERS Safety Report 16404987 (Version 1)
Quarter: 2019Q2

REPORT INFORMATION
  Report Type: Spontaneous
  Country: US (occurrence: US)
  Receive Date: 20190607
  Receipt Date: 20190607
  Transmission Date: 20190711
  Serious: No
  Sender: FDA-Public Use
  Company Number: US-MYLANLABS-2019M1047173

PATIENT

DRUGS (1)
  1. GLATIRAMER [Suspect]
     Active Substance: GLATIRAMER
     Indication: PRODUCT USED FOR UNKNOWN INDICATION
     Dosage: 40 MILLIGRAM

REACTIONS (3)
  - Product substitution issue [Unknown]
  - Muscle spasms [Unknown]
  - Condition aggravated [Unknown]
